FAERS Safety Report 7669460-7 (Version None)
Quarter: 2011Q3

REPORT INFORMATION
  Report Type: 
  Country: None (occurrence: None)
  Receive Date: 20110808
  Receipt Date: 20110712
  Transmission Date: 20111222
  Serious: No
  Sender: FDA-Public Use
  Company Number: JP-EISAI INC-E3810-04256-SPO-JP

PATIENT
  Sex: Female

DRUGS (6)
  1. RABEPRAZOLE SODIUM [Suspect]
     Indication: GASTROOESOPHAGEAL REFLUX DISEASE
     Route: 048
     Dates: start: 20080720, end: 20101117
  2. LOXONIN [Suspect]
     Route: 048
  3. OLMESARTAN MEDOXOMIL [Concomitant]
     Indication: HYPERTENSION
     Dates: start: 20080601
  4. GASPORT [Concomitant]
     Indication: GASTROOESOPHAGEAL REFLUX DISEASE
     Dates: start: 20101118
  5. CALBLOCK [Concomitant]
  6. GASPORT [Concomitant]
     Dates: start: 20080720, end: 20101117

REACTIONS (1)
  - OCCULT BLOOD POSITIVE [None]
